FAERS Safety Report 17629187 (Version 1)
Quarter: 2020Q2

REPORT INFORMATION
  Report Type: Spontaneous
  Country: US (occurrence: US)
  Receive Date: 20200402
  Receipt Date: 20200402
  Transmission Date: 20200713
  Serious: Yes (Other)
  Sender: FDA-Public Use
  Company Number: None

PATIENT
  Age: 79 Year
  Sex: Female
  Weight: 68.49 kg

DRUGS (8)
  1. ATENOLOL. [Concomitant]
     Active Substance: ATENOLOL
  2. IBRANCE [Suspect]
     Active Substance: PALBOCICLIB
     Indication: BREAST CANCER
     Dosage: ?          OTHER FREQUENCY:QD X 21 DAYS;?
     Route: 048
     Dates: start: 20200121, end: 20200401
  3. CHOLECALCIFEROL [Concomitant]
     Active Substance: CHOLECALCIFEROL
  4. RAMIPRIL. [Concomitant]
     Active Substance: RAMIPRIL
  5. DIGOXIN. [Concomitant]
     Active Substance: DIGOXIN
  6. LASIX [Concomitant]
     Active Substance: FUROSEMIDE
  7. WARFARIN [Concomitant]
     Active Substance: WARFARIN
  8. LETROZOLE. [Concomitant]
     Active Substance: LETROZOLE

REACTIONS (1)
  - Full blood count decreased [None]

NARRATIVE: CASE EVENT DATE: 20200401
